FAERS Safety Report 25841710 (Version 1)
Quarter: 2025Q3

REPORT INFORMATION
  Report Type: Spontaneous
  Country: EU (occurrence: EU)
  Receive Date: 20250924
  Receipt Date: 20250924
  Transmission Date: 20251021
  Serious: Yes (Other)
  Sender: TEVA
  Company Number: None

PATIENT
  Age: 77 Year
  Sex: Female
  Weight: 84 kg

DRUGS (2)
  1. SIMVASTATIN [Suspect]
     Active Substance: SIMVASTATIN
     Indication: Cardiac disorder
     Dosage: ONCE A DAY, TABLET FO/ BRAND NAME NOT SPECIFIED
     Route: 048
     Dates: start: 20250617
  2. CARBASPIRIN [Concomitant]
     Active Substance: CARBASPIRIN
     Indication: Product used for unknown indication
     Route: 048

REACTIONS (5)
  - Myocardial infarction [Unknown]
  - Myalgia [Recovered/Resolved]
  - Head discomfort [Recovered/Resolved]
  - Chest discomfort [Not Recovered/Not Resolved]
  - Musculoskeletal stiffness [Recovering/Resolving]
